FAERS Safety Report 25459503 (Version 2)
Quarter: 2025Q3

REPORT INFORMATION
  Report Type: Report from Study
  Country: US (occurrence: US)
  Receive Date: 20250620
  Receipt Date: 20250715
  Transmission Date: 20251021
  Serious: Yes (Death, Other)
  Sender: ACADIA PHARMACEUTICALS
  Company Number: US-ACADIA PHARMACEUTICALS INC.-ACA-2025-PIM-007240

PATIENT
  Age: 86 Year
  Sex: Male

DRUGS (20)
  1. NUPLAZID [Suspect]
     Active Substance: PIMAVANSERIN TARTRATE
     Indication: Parkinson^s disease
     Route: 065
     Dates: start: 20250204
  2. NUPLAZID [Suspect]
     Active Substance: PIMAVANSERIN TARTRATE
     Dosage: 34 MILLIGRAM, QD
     Route: 048
     Dates: start: 20250424
  3. HYDROCODONE BITARTRATE AND ACETAMINOPHEN [Concomitant]
     Active Substance: ACETAMINOPHEN\HYDROCODONE BITARTRATE
  4. PRAMIPEXOLE [Concomitant]
     Active Substance: PRAMIPEXOLE
  5. PANTOPRAZOLE [Concomitant]
     Active Substance: PANTOPRAZOLE
  6. LORAZEPAM [Concomitant]
     Active Substance: LORAZEPAM
  7. MUPIROCIN [Concomitant]
     Active Substance: MUPIROCIN
  8. PREDNISONE [Concomitant]
     Active Substance: PREDNISONE
  9. CEPHALEXIN [Concomitant]
     Active Substance: CEPHALEXIN
  10. DONEPEZIL [Concomitant]
     Active Substance: DONEPEZIL
  11. TOLTERODINE [Concomitant]
     Active Substance: TOLTERODINE
  12. CITALOPRAM [Concomitant]
     Active Substance: CITALOPRAM
  13. ASPIRIN [Concomitant]
     Active Substance: ASPIRIN
  14. MYRBETRIQ [Concomitant]
     Active Substance: MIRABEGRON
  15. ATORVASTATIN [Concomitant]
     Active Substance: ATORVASTATIN
  16. ALBUTEROL SULFATE [Concomitant]
     Active Substance: ALBUTEROL SULFATE
  17. CARVEDILOL [Concomitant]
     Active Substance: CARVEDILOL
  18. CARBIDOPA\LEVODOPA [Concomitant]
     Active Substance: CARBIDOPA\LEVODOPA
  19. GABAPENTIN [Concomitant]
     Active Substance: GABAPENTIN
  20. LANTUS [Concomitant]
     Active Substance: INSULIN GLARGINE

REACTIONS (2)
  - Death [Fatal]
  - Insurance issue [Unknown]

NARRATIVE: CASE EVENT DATE: 20250601
